FAERS Safety Report 14126305 (Version 2)
Quarter: 2018Q3

REPORT INFORMATION
  Report Type: Not Available
  Country: US (occurrence: US)
  Receive Date: 20171025
  Receipt Date: 20180921
  Transmission Date: 20181010
  Serious: No
  Sender: FDA-Public Use
  Company Number: US-NEUROCRINE BIOSCIENCES INC.-2017NBI01166

PATIENT
  Sex: Female
  Weight: 63.11 kg

DRUGS (4)
  1. PROLIXIN DOCUSATE [Concomitant]
     Indication: SCHIZOPHRENIA
     Route: 030
  2. INGREZZA [Suspect]
     Active Substance: VALBENAZINE
     Route: 048
     Dates: start: 20170910, end: 20170925
  3. COGENTIN [Concomitant]
     Active Substance: BENZTROPINE MESYLATE
     Indication: TARDIVE DYSKINESIA
     Dosage: AT NIGHT
     Route: 048
  4. INGREZZA [Suspect]
     Active Substance: VALBENAZINE
     Indication: TARDIVE DYSKINESIA
     Route: 048
     Dates: start: 20170903, end: 20170909

REACTIONS (2)
  - Anxiety [Recovered/Resolved]
  - Panic attack [Recovered/Resolved]

NARRATIVE: CASE EVENT DATE: 2017
